FAERS Safety Report 14014530 (Version 4)
Quarter: 2018Q3

REPORT INFORMATION
  Report Type: Report from Study
  Country: GB (occurrence: GB)
  Receive Date: 20170927
  Receipt Date: 20180716
  Transmission Date: 20181010
  Serious: Yes (Hospitalization)
  Sender: FDA-Public Use
  Company Number: GB-ROCHE-1998285

PATIENT
  Age: 77 Year
  Sex: Male
  Weight: 60 kg

DRUGS (28)
  1. VEMURAFENIB. [Suspect]
     Active Substance: VEMURAFENIB
     Indication: METASTATIC MALIGNANT MELANOMA
     Dosage: DATE OF MOST RECENT DOSE OF VEMURAFENIB PRIOR TO SAE ONSET 20/SEP/2017?TOTAL NUMBER OF TABLETS OF LA
     Route: 048
     Dates: start: 20170623
  2. BLINDED ATEZOLIZUMAB [Suspect]
     Active Substance: ATEZOLIZUMAB
     Indication: METASTATIC MALIGNANT MELANOMA
     Dosage: DATE OF MOST RECENT DOSE OF BLINDED ATEZOLIZUMAB PRIOR TO SAE ONSET 18/AUG/2017
     Route: 042
     Dates: start: 20170721
  3. PREDNISOLONE. [Concomitant]
     Active Substance: PREDNISOLONE
     Indication: ALANINE AMINOTRANSFERASE INCREASED
     Route: 048
     Dates: start: 20170909, end: 20170912
  4. PREDNISOLONE. [Concomitant]
     Active Substance: PREDNISOLONE
     Route: 048
     Dates: start: 20170925, end: 20170925
  5. LOPERAMIDE [Concomitant]
     Active Substance: LOPERAMIDE
     Indication: DIARRHOEA
     Route: 048
     Dates: start: 20170624
  6. SALBUTAMOL [Concomitant]
     Active Substance: ALBUTEROL
     Indication: ASTHMA
     Route: 050
  7. SIMVASTATIN. [Concomitant]
     Active Substance: SIMVASTATIN
     Indication: BLOOD CHOLESTEROL
     Route: 048
     Dates: start: 20170908
  8. FOSTAIR [Concomitant]
     Active Substance: BECLOMETHASONE\FORMOTEROL
     Indication: ASTHMA
     Route: 050
  9. IRBESARTAN. [Concomitant]
     Active Substance: IRBESARTAN
     Indication: BLOOD CHOLESTEROL
     Route: 048
  10. PREDNISOLONE. [Concomitant]
     Active Substance: PREDNISOLONE
     Route: 048
     Dates: start: 20170913, end: 20170915
  11. PREDNISOLONE. [Concomitant]
     Active Substance: PREDNISOLONE
     Route: 048
     Dates: start: 20170924, end: 20170924
  12. METHYLPREDNISOLONE. [Concomitant]
     Active Substance: METHYLPREDNISOLONE
     Indication: ALANINE AMINOTRANSFERASE INCREASED
     Route: 042
     Dates: start: 20170904, end: 20170905
  13. TINZAPARIN [Concomitant]
     Active Substance: TINZAPARIN
     Dosage: 4500 UNIT
     Route: 058
     Dates: start: 20170923, end: 20170926
  14. LANSOPRAZOLE. [Concomitant]
     Active Substance: LANSOPRAZOLE
     Indication: PROPHYLAXIS
     Route: 065
     Dates: start: 20170908
  15. PREDNISOLONE. [Concomitant]
     Active Substance: PREDNISOLONE
     Route: 048
     Dates: start: 20170916, end: 20170918
  16. PREDNISOLONE. [Concomitant]
     Active Substance: PREDNISOLONE
     Route: 048
     Dates: start: 20170919, end: 20170921
  17. DOCUSATE SODIUM. [Concomitant]
     Active Substance: DOCUSATE SODIUM
     Indication: CONSTIPATION
     Route: 065
     Dates: start: 20170706
  18. SENNA [Concomitant]
     Active Substance: SENNA LEAF\SENNOSIDES\SENNOSIDES A AND B
     Route: 065
     Dates: start: 20170706
  19. OILATUM BATH FORMULA [Concomitant]
     Indication: DRY SKIN
     Route: 065
     Dates: start: 20170704
  20. ZOPICLONE [Concomitant]
     Active Substance: ZOPICLONE
     Indication: INSOMNIA
     Route: 048
     Dates: start: 20170620, end: 20170908
  21. CALCEOS [Concomitant]
     Active Substance: CALCIUM CARBONATE\CHOLECALCIFEROL
     Route: 065
     Dates: start: 20170908
  22. PREDNISOLONE. [Concomitant]
     Active Substance: PREDNISOLONE
     Route: 048
     Dates: start: 20170923, end: 20170923
  23. TINZAPARIN [Concomitant]
     Active Substance: TINZAPARIN
     Indication: THROMBOSIS PROPHYLAXIS
     Dosage: 4500 UNIT
     Route: 058
     Dates: start: 20170904, end: 20170908
  24. NIFEDIPINE. [Concomitant]
     Active Substance: NIFEDIPINE
     Indication: HYPERTENSION
     Route: 048
  25. IBUPROFEN. [Concomitant]
     Active Substance: IBUPROFEN
     Indication: PAIN
     Route: 065
     Dates: start: 20170809
  26. COBIMETINIB. [Suspect]
     Active Substance: COBIMETINIB
     Indication: METASTATIC MALIGNANT MELANOMA
     Dosage: DATE OF MOST RECENT DOSE OF COBIMETINIB PRIOR TO SAE 20/SEP/2017?DOSE OF LAST COBIMETINIB ADMINISTER
     Route: 048
     Dates: start: 20170623
  27. PREDNISOLONE. [Concomitant]
     Active Substance: PREDNISOLONE
     Route: 048
     Dates: start: 20170922, end: 20170922
  28. DIHYDROCODEINE [Concomitant]
     Active Substance: DIHYDROCODEINE
     Indication: PAIN
     Route: 048
     Dates: start: 20161115

REACTIONS (2)
  - Alanine aminotransferase increased [Recovered/Resolved]
  - Hyperglycaemia [Recovered/Resolved with Sequelae]

NARRATIVE: CASE EVENT DATE: 20170825
